FAERS Safety Report 20107439 (Version 1)
Quarter: 2021Q4

REPORT INFORMATION
  Report Type: Spontaneous
  Country: SI (occurrence: SI)
  Receive Date: 20211124
  Receipt Date: 20211124
  Transmission Date: 20220303
  Serious: Yes (Other)
  Sender: FDA-Public Use
  Company Number: SI-BAYER-2021A252352

PATIENT
  Age: 77 Year
  Sex: Male

DRUGS (3)
  1. NUBEQA [Suspect]
     Active Substance: DAROLUTAMIDE
     Dosage: 300 MG, BID
     Route: 048
     Dates: start: 202105, end: 202106
  2. FUROSEMIDE [Concomitant]
     Active Substance: FUROSEMIDE
  3. VENTOLIN [Concomitant]
     Active Substance: ALBUTEROL SULFATE

REACTIONS (4)
  - Cardiac failure [None]
  - Chronic obstructive pulmonary disease [None]
  - Dyspnoea [None]
  - Off label use [None]

NARRATIVE: CASE EVENT DATE: 20210520
